FAERS Safety Report 7256015-1 (Version None)
Quarter: 2011Q1

REPORT INFORMATION
  Report Type: 
  Country: None (occurrence: None)
  Receive Date: 20110129
  Receipt Date: 20100520
  Transmission Date: 20110831
  Serious: No
  Sender: FDA-Public Use
  Company Number: US-ABBOTT-10P-163-0646229-00

PATIENT
  Sex: Female
  Weight: 58.566 kg

DRUGS (1)
  1. HUMIRA [Suspect]
     Indication: RHEUMATOID ARTHRITIS
     Route: 058
     Dates: start: 20091201, end: 20100420

REACTIONS (5)
  - KIDNEY INFECTION [None]
  - HYPOAESTHESIA [None]
  - DIZZINESS [None]
  - CHEST PAIN [None]
  - HEADACHE [None]
